FAERS Safety Report 10997375 (Version 1)
Quarter: 2015Q1

REPORT INFORMATION
  Report Type: Spontaneous
  Country: US (occurrence: None)
  Receive Date: 20150331
  Receipt Date: 20150331
  Transmission Date: 20150721
  Serious: Yes (Other)
  Sender: FDA-Public Use
  Company Number: PHEH2014US021777

PATIENT
  Age: 89 Year
  Sex: Female

DRUGS (16)
  1. FOLIC ACID. [Concomitant]
     Active Substance: FOLIC ACID
  2. VIT B12 (CYANOCOBALAMIN) [Concomitant]
  3. LORAFEN (LORAZEPAM) [Concomitant]
  4. LISINOPRIL. [Concomitant]
     Active Substance: LISINOPRIL
  5. FUROSEMIDE. [Concomitant]
     Active Substance: FUROSEMIDE
  6. NAMENDA [Concomitant]
     Active Substance: MEMANTINE HYDROCHLORIDE
  7. OMEPRAZOLE. [Concomitant]
     Active Substance: OMEPRAZOLE
  8. FERROUS SULFATE [Concomitant]
     Active Substance: FERROUS SULFATE\FERROUS SULFATE, DRIED
  9. ATENOLOL. [Concomitant]
     Active Substance: ATENOLOL
  10. CALCIUM [Concomitant]
     Active Substance: CALCIUM
  11. FOSAMAX [Concomitant]
     Active Substance: ALENDRONATE SODIUM
  12. ATORVASTATIN [Concomitant]
     Active Substance: ATORVASTATIN
  13. LEVOTHYROXINE [Concomitant]
     Active Substance: LEVOTHYROXINE
  14. FENOFIBRATE. [Concomitant]
     Active Substance: FENOFIBRATE
  15. EXELON PATCH [Suspect]
     Active Substance: RIVASTIGMINE
     Indication: DEMENTIA ALZHEIMER^S TYPE
     Dosage: INITIAL ROUTINE DOSE WITH INCREASING PATTERN (INITAL DOSE WAS ASSUMED TO BE 4.6MG)
     Route: 062
     Dates: start: 20140718, end: 20140827
  16. ASPIRIN. [Concomitant]
     Active Substance: ASPIRIN

REACTIONS (3)
  - Confusional state [None]
  - Weight decreased [None]
  - Anxiety [None]
